FAERS Safety Report 5124794-5 (Version None)
Quarter: 2006Q4

REPORT INFORMATION
  Report Type: 
  Country: None (occurrence: None)
  Receive Date: 20061006
  Receipt Date: 20060926
  Transmission Date: 20070319
  Serious: Yes (Hospitalization)
  Sender: FDA-Public Use
  Company Number: 2006P1000436

PATIENT
  Age: 57 Year
  Sex: Male
  Weight: 80 kg

DRUGS (9)
  1. RETEPLASE (RETEPLASE) [Suspect]
     Indication: ACUTE MYOCARDIAL INFARCTION
     Dosage: IV
     Route: 042
     Dates: start: 20060821
  2. REOPRO [Suspect]
     Indication: ACUTE MYOCARDIAL INFARCTION
     Dosage: IV
     Route: 042
     Dates: start: 20060821
  3. ACETYLSALICYLATE [Concomitant]
  4. CALCIUM GLUCONATE [Concomitant]
  5. METOPROLOL TARTRATE [Concomitant]
  6. TEMAZEPAM [Concomitant]
  7. SIMVASTATIN [Concomitant]
  8. CLEXANE [Concomitant]
  9. ACETAMINOPHEN [Concomitant]

REACTIONS (9)
  - ARTERIOSCLEROSIS CORONARY ARTERY [None]
  - CHEST X-RAY ABNORMAL [None]
  - CORONARY ARTERY DISEASE [None]
  - CORONARY ARTERY STENOSIS [None]
  - CORONARY ARTERY THROMBOSIS [None]
  - ILL-DEFINED DISORDER [None]
  - MUSCULOSKELETAL PAIN [None]
  - MYALGIA [None]
  - PROCEDURAL PAIN [None]
